FAERS Safety Report 16270527 (Version 2)
Quarter: 2019Q2

REPORT INFORMATION
  Report Type: Spontaneous
  Country: IT (occurrence: GB)
  Receive Date: 20190503
  Receipt Date: 20190517
  Transmission Date: 20190711
  Serious: Yes (Death, Other)
  Sender: FDA-Public Use
  Company Number: IT-SUNOVION-2019SUN001823

PATIENT

DRUGS (5)
  1. LATUDA [Suspect]
     Active Substance: LURASIDONE HYDROCHLORIDE
     Indication: PRODUCT USED FOR UNKNOWN INDICATION
     Dosage: UNK
     Route: 048
     Dates: start: 20190207
  2. PROCYCLIDINE [Concomitant]
     Active Substance: PROCYCLIDINE
     Indication: INADEQUATE DIET
     Dosage: 5 MG
     Route: 048
  3. FERROUS FUMARATE [Concomitant]
     Active Substance: FERROUS FUMARATE
     Indication: INADEQUATE DIET
     Dosage: 2 DF
     Route: 048
  4. FOLIC ACID. [Concomitant]
     Active Substance: FOLIC ACID
     Indication: INADEQUATE DIET
     Dosage: 5 MG
     Route: 048
  5. VITAMIN B COMPOUND [Concomitant]
     Indication: INADEQUATE DIET
     Route: 048

REACTIONS (3)
  - Cardiac failure [Fatal]
  - Neutropenia [Fatal]
  - Hyponatraemia [Fatal]
